FAERS Safety Report 9820003 (Version 1)
Quarter: 2013Q3

REPORT INFORMATION
  Report Type: Spontaneous
  Country: US (occurrence: None)
  Receive Date: 20130924
  Receipt Date: 20130924
  Transmission Date: 20140515
  Serious: Yes (Other)
  Sender: FDA-Public Use
  Company Number: 2013000230

PATIENT
  Age: 57 Year
  Sex: Female
  Weight: 62.6 kg

DRUGS (2)
  1. OSPHENA [Suspect]
     Indication: DYSPAREUNIA
     Dates: start: 20130718, end: 20130719
  2. VALTREX (VALACICLOVIR HYDROCHLORIDE) [Concomitant]

REACTIONS (2)
  - Rash erythematous [None]
  - Lip oedema [None]
